FAERS Safety Report 6646666-7 (Version None)
Quarter: 2010Q1

REPORT INFORMATION
  Report Type: 
  Country: None (occurrence: None)
  Receive Date: 20100322
  Receipt Date: 20100322
  Transmission Date: 20100710
  Serious: Yes (Death)
  Sender: FDA-Public Use
  Company Number: None

PATIENT
  Age: 66 Year
  Sex: Male
  Weight: 69 kg

DRUGS (22)
  1. ACETYLCYSTEINE [Suspect]
     Indication: PROPHYLAXIS
     Dosage: 600 MG, PO BID X4 (3 GIVEN)
     Route: 048
     Dates: start: 20090929
  2. ACETYLCYSTEINE [Suspect]
     Indication: SCAN WITH CONTRAST
     Dosage: 600 MG, PO BID X4 (3 GIVEN)
     Route: 048
     Dates: start: 20090929
  3. ACETYLCYSTEINE [Suspect]
     Indication: PROPHYLAXIS
     Dosage: 600 MG, PO BID X4 (3 GIVEN)
     Route: 048
     Dates: start: 20090930
  4. ACETYLCYSTEINE [Suspect]
     Indication: SCAN WITH CONTRAST
     Dosage: 600 MG, PO BID X4 (3 GIVEN)
     Route: 048
     Dates: start: 20090930
  5. ACETYLCYSTEINE [Suspect]
     Indication: PROPHYLAXIS
     Dosage: 600 MG, PO BID X4 (3 GIVEN)
     Route: 048
     Dates: start: 20090930
  6. ACETYLCYSTEINE [Suspect]
     Indication: SCAN WITH CONTRAST
     Dosage: 600 MG, PO BID X4 (3 GIVEN)
     Route: 048
     Dates: start: 20090930
  7. DIAZEPMAN [Concomitant]
  8. DIPHENHYDRAMINE HYDROCHLORIDE [Concomitant]
  9. ASPIRIN [Concomitant]
  10. FUROSEMIDE [Concomitant]
  11. ISOSORBIDE MONO [Concomitant]
  12. MAGNESIUM OXIDE [Concomitant]
  13. METOPROLOL [Concomitant]
  14. MINOCYCLINE HCL [Concomitant]
  15. NITROGLYCERIN [Concomitant]
  16. OMEGA 3 FATTY ACID [Concomitant]
  17. ZOLPIDEM [Concomitant]
  18. HEPARIN [Concomitant]
  19. MAGNESIUM SULFATE [Concomitant]
  20. KCI ELIXER [Concomitant]
  21. SODIUM BICARBONATE [Concomitant]
  22. POTASSIUM CHLORIDE [Concomitant]

REACTIONS (4)
  - CARDIO-RESPIRATORY ARREST [None]
  - FEELING ABNORMAL [None]
  - FLUSHING [None]
  - HYPOTENSION [None]
